FAERS Safety Report 8910452 (Version 1)
Quarter: 2012Q4

REPORT INFORMATION
  Report Type: 
  Country: DE (occurrence: DE)
  Receive Date: 20121114
  Receipt Date: 20121114
  Transmission Date: 20130627
  Serious: Yes (Hospitalization)
  Sender: FDA-Public Use
  Company Number: DE-UCBSA-070753

PATIENT
  Age: 73 Year
  Sex: Male

DRUGS (2)
  1. NEUPRO [Suspect]
     Indication: PARKINSON^S DISEASE
     Route: 062
  2. RAMILICH [Concomitant]
     Indication: HYPERTENSION

REACTIONS (7)
  - Angina pectoris [Unknown]
  - Tremor [Unknown]
  - Dysphagia [Unknown]
  - Heart rate decreased [Unknown]
  - Fatigue [Unknown]
  - Unresponsive to stimuli [Unknown]
  - Malaise [Unknown]
